FAERS Safety Report 4713287-2 (Version None)
Quarter: 2005Q3

REPORT INFORMATION
  Report Type: 
  Country: None (occurrence: None)
  Receive Date: 20050713
  Receipt Date: 20050708
  Transmission Date: 20060218
  Serious: Yes (Death, Hospitalization)
  Sender: FDA-Public Use
  Company Number: 2005AC01023

PATIENT
  Age: 68 Year
  Sex: Male

DRUGS (4)
  1. CASODEX [Suspect]
     Indication: PROSTATE CANCER
     Route: 048
     Dates: start: 20040901, end: 20041115
  2. DECAPEPTYL TRIM [Suspect]
     Indication: PROSTATE CANCER
     Route: 030
     Dates: start: 20040928
  3. CEMIDON [Suspect]
     Indication: BLADDER CANCER
     Route: 048
     Dates: start: 20040901, end: 20041101
  4. AUGMENTIN '125' [Suspect]
     Indication: BRONCHITIS CHRONIC
     Dosage: 500/125
     Route: 048
     Dates: start: 20041021, end: 20041101

REACTIONS (1)
  - HEPATITIS [None]
